FAERS Safety Report 5306962-2 (Version None)
Quarter: 2007Q2

REPORT INFORMATION
  Report Type: 
  Country: None (occurrence: None)
  Receive Date: 20070425
  Receipt Date: 20070419
  Transmission Date: 20071010
  Serious: Yes (Life-Threatening, Hospitalization)
  Sender: FDA-Public Use
  Company Number: GB-BAYER-200610504BNE

PATIENT
  Age: 52 Year
  Sex: Male
  Weight: 74 kg

DRUGS (18)
  1. SORAFENIB [Suspect]
     Dosage: TOTAL DAILY DOSE: 800 MG  UNIT DOSE: 200 MG
     Route: 048
     Dates: start: 20060420, end: 20060423
  2. DEXAMETHASONE 0.5MG TAB [Concomitant]
     Indication: SPINAL CORD COMPRESSION
     Route: 042
     Dates: start: 20060424, end: 20060428
  3. DEXAMETHASONE 0.5MG TAB [Concomitant]
     Route: 048
     Dates: start: 20060414, end: 20060423
  4. LANSAPROSOLE [Concomitant]
     Route: 048
     Dates: start: 20060427, end: 20060511
  5. LANSAPROSOLE [Concomitant]
     Route: 048
     Dates: start: 20060414, end: 20060426
  6. CLEXANE [Concomitant]
     Indication: CONSTIPATION
     Route: 058
     Dates: start: 20060425, end: 20060425
  7. CLEXANE [Concomitant]
     Route: 058
     Dates: start: 20060426, end: 20060509
  8. CLEXANE [Concomitant]
     Route: 058
     Dates: start: 20060413, end: 20060422
  9. LACTULOSE [Concomitant]
     Route: 048
     Dates: start: 20060413, end: 20060414
  10. LACTULOSE [Concomitant]
     Route: 048
     Dates: start: 20060416, end: 20060424
  11. MOVICOL [Concomitant]
     Indication: CONSTIPATION
     Route: 048
     Dates: start: 20060414, end: 20060424
  12. SENNA [Concomitant]
     Indication: CONSTIPATION
     Route: 048
     Dates: start: 20060413, end: 20060413
  13. MST [Concomitant]
     Indication: PAIN
     Route: 048
     Dates: start: 20060417, end: 20060422
  14. MST [Concomitant]
     Route: 048
     Dates: start: 20060413, end: 20060417
  15. LOSEC [Concomitant]
     Route: 042
     Dates: start: 20060424, end: 20060424
  16. SEVERADOL [Concomitant]
     Indication: PAIN
     Route: 048
     Dates: start: 20060417, end: 20060421
  17. SEVERADOL [Concomitant]
     Route: 048
     Dates: start: 20060413, end: 20060417
  18. GABAPENTIN [Concomitant]
     Indication: NEURALGIA
     Route: 048
     Dates: start: 20060419, end: 20060511

REACTIONS (3)
  - LARGE INTESTINE PERFORATION [None]
  - PELVIC ABSCESS [None]
  - PERITONITIS [None]
